FAERS Safety Report 18581008 (Version 3)
Quarter: 2021Q1

REPORT INFORMATION
  Report Type: Spontaneous
  Country: DE (occurrence: DE)
  Receive Date: 20201204
  Receipt Date: 20210104
  Transmission Date: 20210419
  Serious: Yes (Life-Threatening, Hospitalization, Disabling, Other)
  Sender: FDA-Public Use
  Company Number: DE-MYLANLABS-2020M1098449

PATIENT
  Age: 59 Year
  Sex: Female
  Weight: 58 kg

DRUGS (3)
  1. ANAGRELIDE. [Suspect]
     Active Substance: ANAGRELIDE HYDROCHLORIDE
     Indication: ESSENTIAL THROMBOCYTHAEMIA
     Dosage: 0.5 MILLIGRAM, Q6H (FOR 4 YEARS 1?1?1?1)
     Route: 048
  2. LEVOTHYROXINE SODIUM. [Concomitant]
     Active Substance: LEVOTHYROXINE SODIUM
     Dosage: 50 MICROGRAM, QD (1?0?0 )
  3. TORASEMIDE                         /01036502/ [Concomitant]
     Active Substance: TORSEMIDE
     Dosage: 5 MILLIGRAM, QD (1?0?0)

REACTIONS (13)
  - Cough [Unknown]
  - Chronic kidney disease [Not Recovered/Not Resolved]
  - Mitral valve incompetence [Not Recovered/Not Resolved]
  - Congestive cardiomyopathy [Not Recovered/Not Resolved]
  - Cardiotoxicity [Not Recovered/Not Resolved]
  - Acute kidney injury [Not Recovered/Not Resolved]
  - Normochromic normocytic anaemia [Not Recovered/Not Resolved]
  - Dyspnoea [Unknown]
  - Oedema peripheral [Unknown]
  - Ejection fraction decreased [Not Recovered/Not Resolved]
  - Angina pectoris [Unknown]
  - Nephropathy toxic [Not Recovered/Not Resolved]
  - Renal failure [Not Recovered/Not Resolved]

NARRATIVE: CASE EVENT DATE: 2020
